FAERS Safety Report 8093201-5 (Version None)
Quarter: 2012Q1

REPORT INFORMATION
  Report Type: 
  Country: None (occurrence: None)
  Receive Date: 20120128
  Receipt Date: 20111010
  Transmission Date: 20120608
  Serious: Yes (Other)
  Sender: FDA-Public Use
  Company Number: US-ABBOTT-11P-163-0695390-00

PATIENT
  Age: 40 Year
  Sex: Female
  Weight: 123.49 kg

DRUGS (2)
  1. HUMIRA [Suspect]
     Indication: PSORIATIC ARTHROPATHY
     Dates: start: 20071219, end: 20101201
  2. HUMIRA [Suspect]
     Indication: PSORIASIS

REACTIONS (1)
  - HISTOPLASMOSIS [None]
